FAERS Safety Report 6662927-X (Version None)
Quarter: 2010Q2

REPORT INFORMATION
  Report Type: 
  Country: None (occurrence: None)
  Receive Date: 20100401
  Receipt Date: 20100327
  Transmission Date: 20101027
  Serious: Yes (Disabling)
  Sender: FDA-Public Use
  Company Number: PRIUSA1999000904

PATIENT
  Sex: Female

DRUGS (1)
  1. LEVOFLOXACIN [Suspect]
     Indication: PYELONEPHRITIS
     Route: 048
     Dates: start: 19981209, end: 19981213

REACTIONS (3)
  - DEAFNESS [None]
  - EAR PAIN [None]
  - TINNITUS [None]
